FAERS Safety Report 11163088 (Version 1)
Quarter: 2015Q2

REPORT INFORMATION
  Report Type: Spontaneous
  Country: CN (occurrence: None)
  Receive Date: 20150602
  Receipt Date: 20150602
  Transmission Date: 20150821
  Serious: Yes (Life-Threatening)
  Sender: FDA-Public Use
  Company Number: INT_00770_2015

PATIENT
  Age: 40 Year
  Sex: Male

DRUGS (3)
  1. ERLOTINIB [Suspect]
     Active Substance: ERLOTINIB
     Indication: OESOPHAGEAL SQUAMOUS CELL CARCINOMA
     Dates: start: 20130318, end: 20150415
  2. RADIOTHERAPY [Suspect]
     Active Substance: RADIATION THERAPY
     Indication: OESOPHAGEAL SQUAMOUS CELL CARCINOMA
     Dosage: 42GY/2GY/21F
     Dates: start: 20130318, end: 20130415
  3. PACLITAXEL. [Suspect]
     Active Substance: PACLITAXEL
     Indication: OESOPHAGEAL SQUAMOUS CELL CARCINOMA
     Dosage: WEEKLY FOR 4 TIMES
     Dates: start: 20130318, end: 20130415

REACTIONS (2)
  - Pulmonary alveolar haemorrhage [None]
  - Pneumocystis jirovecii infection [None]

NARRATIVE: CASE EVENT DATE: 20130416
